FAERS Safety Report 13405531 (Version 1)
Quarter: 2017Q2

REPORT INFORMATION
  Report Type: Spontaneous
  Country: US (occurrence: US)
  Receive Date: 20170405
  Receipt Date: 20170405
  Transmission Date: 20170830
  Serious: No
  Sender: FDA-Public Use
  Company Number: US-PFIZER INC-2017143441

PATIENT
  Sex: Male

DRUGS (1)
  1. XELJANZ XR [Suspect]
     Active Substance: TOFACITINIB CITRATE
     Dosage: 11 MG, UNK
     Dates: start: 20161101

REACTIONS (13)
  - Joint swelling [Not Recovered/Not Resolved]
  - Balance disorder [Unknown]
  - Red blood cell sedimentation rate increased [Unknown]
  - Carbon dioxide decreased [Unknown]
  - Musculoskeletal stiffness [Not Recovered/Not Resolved]
  - Dry eye [Unknown]
  - Dyspnoea [Unknown]
  - Weight increased [Unknown]
  - Back pain [Unknown]
  - Peripheral swelling [Unknown]
  - Pain [Not Recovered/Not Resolved]
  - Flatulence [Unknown]
  - Headache [Unknown]
